FAERS Safety Report 9228570 (Version 1)
Quarter: 2013Q2

REPORT INFORMATION
  Report Type: Report from Study
  Country: CA (occurrence: CA)
  Receive Date: 20130412
  Receipt Date: 20130412
  Transmission Date: 20140414
  Serious: Yes (Hospitalization)
  Sender: FDA-Public Use
  Company Number: CA-JNJFOC-20130404269

PATIENT
  Sex: Female
  Weight: 56.7 kg

DRUGS (2)
  1. REMICADE [Suspect]
     Indication: CROHN^S DISEASE
     Route: 042
     Dates: start: 200507
  2. IMURAN [Concomitant]
     Route: 065

REACTIONS (3)
  - Intestinal resection [Unknown]
  - Crohn^s disease [Recovering/Resolving]
  - Dental caries [Unknown]
